FAERS Safety Report 15691785 (Version 2)
Quarter: 2019Q3

REPORT INFORMATION
  Report Type: Spontaneous
  Country: NO (occurrence: NO)
  Receive Date: 20181205
  Receipt Date: 20190926
  Transmission Date: 20191004
  Serious: Yes (Other)
  Sender: FDA-Public Use
  Company Number: NO-ELI_LILLY_AND_COMPANY-NO201811012366

PATIENT
  Sex: Male

DRUGS (8)
  1. ZYPADHERA [Suspect]
     Active Substance: OLANZAPINE PAMOATE
     Dosage: 300 MG
     Route: 065
  2. CISORDINOL [ZUCLOPENTHIXOL ACETATE] [Suspect]
     Active Substance: ZUCLOPENTHIXOL ACETATE
     Indication: SCHIZOPHRENIA
     Dosage: UNK UNK, UNKNOWN
     Route: 065
  3. ZYPADHERA [Suspect]
     Active Substance: OLANZAPINE PAMOATE
     Indication: SCHIZOPHRENIA
     Dosage: UNK UNK, EVERY TWO WEEKS
     Route: 065
     Dates: start: 20090401, end: 20180326
  4. CISORDINOL [ZUCLOPENTHIXOL ACETATE] [Suspect]
     Active Substance: ZUCLOPENTHIXOL ACETATE
     Dosage: 100 MG, EVERY 14TH DYAS
  5. ZYPADHERA [Suspect]
     Active Substance: OLANZAPINE PAMOATE
     Dosage: 405 MG, MONTHLY (1/M)
     Route: 065
  6. CISORDINOL [ZUCLOPENTHIXOL ACETATE] [Suspect]
     Active Substance: ZUCLOPENTHIXOL ACETATE
     Dosage: 150 MG
     Route: 065
     Dates: start: 201101
  7. ZYPREXA [Suspect]
     Active Substance: OLANZAPINE
     Indication: SCHIZOPHRENIA
     Dosage: UNK UNK, UNKNOWN
     Route: 065
     Dates: start: 20090401, end: 20180326
  8. ABILIFY [Suspect]
     Active Substance: ARIPIPRAZOLE
     Indication: SCHIZOPHRENIA
     Dosage: UNK UNK, UNKNOWN
     Route: 065
     Dates: start: 20090401, end: 20180326

REACTIONS (23)
  - Parkinson^s disease [Not Recovered/Not Resolved]
  - Constipation [Unknown]
  - Erectile dysfunction [Unknown]
  - Malaise [Unknown]
  - Lip neoplasm malignant stage unspecified [Unknown]
  - Fatigue [Unknown]
  - Chronic obstructive pulmonary disease [Not Recovered/Not Resolved]
  - Urinary tract disorder [Unknown]
  - Dizziness [Unknown]
  - Multiple sclerosis [Unknown]
  - Sleep disorder [Unknown]
  - Nightmare [Unknown]
  - Feeling abnormal [Unknown]
  - Adrenal adenoma [Unknown]
  - Diarrhoea [Unknown]
  - Tinnitus [Unknown]
  - Decreased appetite [Unknown]
  - Antisocial personality disorder [Unknown]
  - Tooth injury [Not Recovered/Not Resolved]
  - Depression [Unknown]
  - Lipase increased [Unknown]
  - Hepatic steatosis [Unknown]
  - Basedow^s disease [Unknown]

NARRATIVE: CASE EVENT DATE: 20100714
